FAERS Safety Report 15881351 (Version 6)
Quarter: 2019Q3

REPORT INFORMATION
  Report Type: Report from Study
  Country: CN (occurrence: CN)
  Receive Date: 20190128
  Receipt Date: 20190903
  Transmission Date: 20191004
  Serious: Yes (Hospitalization)
  Sender: FDA-Public Use
  Company Number: CN-EISAI MEDICAL RESEARCH-EC-2019-050771

PATIENT
  Age: 45 Year
  Sex: Female
  Weight: 72 kg

DRUGS (10)
  1. CORBIN [Concomitant]
  2. LENVATINIB [Suspect]
     Active Substance: LENVATINIB
     Indication: PAPILLARY THYROID CANCER
     Route: 048
     Dates: start: 20181220, end: 20190117
  3. LENVATINIB [Suspect]
     Active Substance: LENVATINIB
     Route: 048
     Dates: start: 20190603
  4. CANDESARTAN. [Concomitant]
     Active Substance: CANDESARTAN
  5. LEKADIPINE HYDROCHLORIDE [Concomitant]
  6. LENVATINIB [Suspect]
     Active Substance: LENVATINIB
     Route: 048
     Dates: start: 20190127, end: 20190315
  7. LENVATINIB [Suspect]
     Active Substance: LENVATINIB
     Route: 048
     Dates: start: 20190329, end: 20190425
  8. HUANGKUI [Concomitant]
  9. INDAPAMIDE. [Concomitant]
     Active Substance: INDAPAMIDE
  10. GUANXINDANSHEN DROP PILLS [Concomitant]

REACTIONS (2)
  - Nephrotic syndrome [Recovered/Resolved]
  - Hypertension [Not Recovered/Not Resolved]

NARRATIVE: CASE EVENT DATE: 20181228
